FAERS Safety Report 18616254 (Version 4)
Quarter: 2021Q1

REPORT INFORMATION
  Report Type: Spontaneous
  Country: JP (occurrence: JP)
  Receive Date: 20201214
  Receipt Date: 20210301
  Transmission Date: 20210419
  Serious: Yes (Death, Other)
  Sender: FDA-Public Use
  Company Number: JP-ASTELLAS-2020JP019512

PATIENT
  Age: 6 Decade
  Sex: Male

DRUGS (3)
  1. VANFLYTA [Concomitant]
     Active Substance: QUIZARTINIB
     Indication: PRODUCT USED FOR UNKNOWN INDICATION
     Dosage: UNK UNK, UNKNOWN FREQ.
     Route: 065
  2. XOSPATA [Suspect]
     Active Substance: GILTERITINIB
     Indication: PRODUCT USED FOR UNKNOWN INDICATION
     Route: 048
     Dates: start: 20201208, end: 20210202
  3. VANFLYTA [Concomitant]
     Active Substance: QUIZARTINIB
     Dosage: UNK UNK, UNKNOWN FREQ.
     Route: 065

REACTIONS (4)
  - Myelosuppression [Unknown]
  - Hepatic function abnormal [Not Recovered/Not Resolved]
  - Disease progression [Fatal]
  - Nausea [Unknown]
